FAERS Safety Report 5133424-8 (Version None)
Quarter: 2006Q4

REPORT INFORMATION
  Report Type: 
  Country: None (occurrence: None)
  Receive Date: 20061024
  Receipt Date: 20061012
  Transmission Date: 20070319
  Serious: Yes (Hospitalization)
  Sender: FDA-Public Use
  Company Number: 2006PK02093

PATIENT
  Age: 24464 Day
  Sex: Female

DRUGS (3)
  1. ARIMIDEX [Suspect]
     Indication: BREAST CANCER
     Route: 048
     Dates: start: 20060701, end: 20060922
  2. ARIMIDEX [Suspect]
     Route: 048
     Dates: start: 20061007
  3. IBANDRONATE [Suspect]
     Indication: BREAST CANCER
     Route: 042
     Dates: start: 20060630

REACTIONS (7)
  - BLISTER [None]
  - CYSTITIS [None]
  - DIARRHOEA [None]
  - EXCORIATION [None]
  - PYREXIA [None]
  - SKIN REACTION [None]
  - VOMITING [None]
